FAERS Safety Report 4444425-7 (Version None)
Quarter: 2004Q3

REPORT INFORMATION
  Report Type: 
  Country: None (occurrence: None)
  Receive Date: 20040902
  Receipt Date: 20040818
  Transmission Date: 20050211
  Serious: Yes (Hospitalization)
  Sender: FDA-Public Use
  Company Number: US_0408104869

PATIENT
  Age: 75 Year
  Sex: Male

DRUGS (7)
  1. CEFACLOR [Suspect]
     Indication: ARTHRITIS BACTERIAL
     Dosage: 500 MG/3 DAY
     Dates: start: 20030715, end: 20030722
  2. FOLIC ACID [Concomitant]
  3. THEOPHYLLINE [Concomitant]
  4. ACIPHEX [Concomitant]
  5. FLOVENT [Concomitant]
  6. ALLERGRA (FEXOFENADINE HDYROCHLORIDE) [Concomitant]
  7. METHOTREXATE [Concomitant]

REACTIONS (2)
  - ANOREXIA [None]
  - DEHYDRATION [None]
